FAERS Safety Report 10645370 (Version 1)
Quarter: 2014Q4

REPORT INFORMATION
  Report Type: Spontaneous
  Country: None (occurrence: None)
  Receive Date: 20141210
  Receipt Date: 20141210
  Transmission Date: 20150529
  Serious: Yes (Other)
  Sender: FDA-Public Use
  Company Number: None

PATIENT
  Age: 62 Year
  Sex: Female
  Weight: 68.04 kg

DRUGS (1)
  1. SPIRIVA [Suspect]
     Active Substance: TIOTROPIUM BROMIDE MONOHYDRATE
     Indication: ASTHMA
     Route: 055
     Dates: start: 20141007, end: 20141201

REACTIONS (7)
  - Irritable bowel syndrome [None]
  - Constipation [None]
  - Oral candidiasis [None]
  - Dry mouth [None]
  - Headache [None]
  - Myalgia [None]
  - Therapeutic response unexpected [None]

NARRATIVE: CASE EVENT DATE: 20141201
